FAERS Safety Report 13285279 (Version 3)
Quarter: 2017Q4

REPORT INFORMATION
  Report Type: Report from Study
  Country: US (occurrence: US)
  Receive Date: 20170301
  Receipt Date: 20171130
  Transmission Date: 20180320
  Serious: Yes (Other)
  Sender: FDA-Public Use
  Company Number: US-SHIRE-US201703931

PATIENT
  Sex: Female

DRUGS (1)
  1. VYVANSE [Suspect]
     Active Substance: LISDEXAMFETAMINE DIMESYLATE
     Indication: PRODUCT USED FOR UNKNOWN INDICATION
     Dosage: 20 MG, UNKNOWN
     Route: 048
     Dates: start: 20170112

REACTIONS (11)
  - Suicidal ideation [Unknown]
  - Haemorrhage [Unknown]
  - Drug diversion [Unknown]
  - Depressed mood [Unknown]
  - Hand fracture [Unknown]
  - Antisocial behaviour [Unknown]
  - Fall [Unknown]
  - Pruritus generalised [Unknown]
  - Urticaria [Unknown]
  - Inappropriate schedule of drug administration [Unknown]
  - Withdrawal syndrome [Unknown]
